FAERS Safety Report 4808257-X (Version None)
Quarter: 2005Q4

REPORT INFORMATION
  Report Type: 
  Country: None (occurrence: None)
  Receive Date: 20051021
  Receipt Date: 20040519
  Transmission Date: 20060501
  Serious: Yes (Hospitalization)
  Sender: FDA-Public Use
  Company Number: EWC040539384

PATIENT
  Age: 60 Year
  Sex: Male

DRUGS (7)
  1. OLANZAPINE [Suspect]
     Indication: SCHIZOAFFECTIVE DISORDER
     Dosage: 20 MG/1
  2. TOLTERODINE TARTRATE [Concomitant]
  3. LI (LITHIUM CARBONATE) [Concomitant]
  4. GLUCOPHAGE [Concomitant]
  5. BUMETANIDE [Concomitant]
  6. ATROVENT [Concomitant]
  7. NUELIN DEPOT (THEOPHYLLINE) [Concomitant]

REACTIONS (1)
  - PULMONARY EMBOLISM [None]
